FAERS Safety Report 18428480 (Version 1)
Quarter: 2020Q4

REPORT INFORMATION
  Report Type: Spontaneous
  Country: FR (occurrence: FR)
  Receive Date: 20201026
  Receipt Date: 20201026
  Transmission Date: 20210114
  Serious: Yes (Hospitalization)
  Sender: FDA-Public Use
  Company Number: NVSC2020FR283572

PATIENT
  Age: 72 Year
  Sex: Male
  Weight: 99 kg

DRUGS (3)
  1. APROVEL [Concomitant]
     Active Substance: IRBESARTAN
     Indication: HYPERTENSION
     Dosage: 300 MG, QD
     Route: 048
     Dates: end: 20200522
  2. ZOVIRAX [Concomitant]
     Active Substance: ACYCLOVIR
     Indication: MENINGOENCEPHALITIS HERPETIC
     Dosage: 3 G, QD
     Route: 042
     Dates: start: 20200514, end: 20200604
  3. AMOXICILLINE [Suspect]
     Active Substance: AMOXICILLIN
     Indication: MENINGOENCEPHALITIS HERPETIC
     Dosage: 16 G, QD
     Route: 042
     Dates: start: 20200514, end: 20200522

REACTIONS (1)
  - Acute kidney injury [Recovered/Resolved]

NARRATIVE: CASE EVENT DATE: 20200522
